FAERS Safety Report 25414210 (Version 1)
Quarter: 2025Q2

REPORT INFORMATION
  Report Type: Spontaneous
  Country: US (occurrence: US)
  Receive Date: 20250609
  Receipt Date: 20250609
  Transmission Date: 20250717
  Serious: No
  Sender: ABBVIE
  Company Number: US-ABBVIE-6311180

PATIENT
  Age: 56 Year
  Sex: Female
  Weight: 108 kg

DRUGS (1)
  1. ESTRADIOL [Suspect]
     Active Substance: ESTRADIOL
     Indication: Menopause
     Route: 067
     Dates: start: 2024

REACTIONS (3)
  - Vulvovaginal discomfort [Not Recovered/Not Resolved]
  - Discomfort [Recovering/Resolving]
  - Device issue [Not Recovered/Not Resolved]

NARRATIVE: CASE EVENT DATE: 20250501
